FAERS Safety Report 15325664 (Version 1)
Quarter: 2018Q3

REPORT INFORMATION
  Report Type: Spontaneous
  Country: US (occurrence: US)
  Receive Date: 20180822
  Receipt Date: 20180822
  Transmission Date: 20181010
  Serious: Yes (Life-Threatening, Hospitalization)
  Sender: FDA-Public Use
  Company Number: None

PATIENT
  Age: 47 Year
  Sex: Male
  Weight: 61 kg

DRUGS (2)
  1. VRAYLAR [Suspect]
     Active Substance: CARIPRAZINE
     Indication: BIPOLAR I DISORDER
     Route: 048
     Dates: start: 20180723, end: 20180728
  2. TRINTELLIX [Suspect]
     Active Substance: VORTIOXETINE HYDROBROMIDE
     Indication: DEPRESSION
     Route: 048
     Dates: start: 20180723, end: 20180728

REACTIONS (9)
  - Hyperthermia [None]
  - Catatonia [None]
  - Tachycardia [None]
  - Asthenia [None]
  - Rhabdomyolysis [None]
  - Neuroleptic malignant syndrome [None]
  - Tachypnoea [None]
  - Muscle tightness [None]
  - Mental status changes [None]

NARRATIVE: CASE EVENT DATE: 20180729
